FAERS Safety Report 19654465 (Version 2)
Quarter: 2021Q3

REPORT INFORMATION
  Report Type: Report from Study
  Country: None (occurrence: US)
  Receive Date: 20210804
  Receipt Date: 20210817
  Transmission Date: 20211014
  Serious: Yes (Hospitalization, Other)
  Sender: FDA-Public Use
  Company Number: US-ABBVIE-21K-163-4014794-00

PATIENT
  Sex: Female

DRUGS (1)
  1. HUMIRA [Suspect]
     Active Substance: ADALIMUMAB
     Indication: RHEUMATOID ARTHRITIS
     Route: 058

REACTIONS (5)
  - Pulmonary oedema [Recovered/Resolved]
  - Myocardial oedema [Recovered/Resolved]
  - Scleroderma [Unknown]
  - Cholecystectomy [Recovering/Resolving]
  - Renal failure [Recovering/Resolving]
